FAERS Safety Report 5445260-3 (Version None)
Quarter: 2007Q3

REPORT INFORMATION
  Report Type: 
  Country: None (occurrence: None)
  Receive Date: 20070906
  Receipt Date: 20070820
  Transmission Date: 20080115
  Serious: Yes (Other)
  Sender: FDA-Public Use
  Company Number: CA-GILEAD-2006-0010242

PATIENT
  Sex: Male

DRUGS (8)
  1. TRUVADA [Suspect]
     Indication: HIV INFECTION
     Route: 048
     Dates: start: 20060808, end: 20061121
  2. ATAZANIVR [Concomitant]
     Indication: HIV INFECTION
     Route: 048
     Dates: start: 20060609, end: 20061009
  3. ATAZANIVR [Concomitant]
     Dates: start: 20061010
  4. RITONAVIR [Concomitant]
     Indication: HIV INFECTION
     Route: 048
     Dates: start: 20060609, end: 20061010
  5. SEPTRA [Concomitant]
     Indication: ANTIFUNGAL PROPHYLAXIS
     Route: 048
     Dates: start: 20060501
  6. VENLAFLAXINE [Concomitant]
     Indication: DEPRESSION
     Route: 048
     Dates: start: 20010101
  7. LORAZEPAM [Concomitant]
     Indication: ANXIETY
     Route: 048
     Dates: start: 20010101
  8. SILDENAFIL CITRATE [Concomitant]
     Indication: ERECTILE DYSFUNCTION
     Route: 048
     Dates: start: 20060701

REACTIONS (1)
  - HENOCH-SCHONLEIN PURPURA [None]
